FAERS Safety Report 5471382-7 (Version None)
Quarter: 2007Q3

REPORT INFORMATION
  Report Type: 
  Country: None (occurrence: None)
  Receive Date: 20070928
  Receipt Date: 20060918
  Transmission Date: 20080115
  Serious: No
  Sender: FDA-Public Use
  Company Number: US-BRISTOL-MYERS SQUIBB COMPANY-13512553

PATIENT
  Age: 76 Year
  Sex: Male

DRUGS (1)
  1. DEFINITY [Suspect]
     Indication: ULTRASOUND DOPPLER
     Dates: start: 20060915

REACTIONS (1)
  - FLUSHING [None]
